FAERS Safety Report 23954915 (Version 1)
Quarter: 2024Q2

REPORT INFORMATION
  Report Type: Other
  Country: US (occurrence: US)
  Receive Date: 20240610
  Receipt Date: 20240610
  Transmission Date: 20240716
  Serious: Yes (Other)
  Sender: FDA-Public Use
  Company Number: US-OrBion Pharmaceuticals Private Limited-2157935

PATIENT
  Age: 24 Month

DRUGS (1)
  1. DIVALPROEX SODIUM [Suspect]
     Active Substance: DIVALPROEX SODIUM
     Indication: Idiopathic generalised epilepsy
     Route: 065

REACTIONS (1)
  - Central sleep apnoea syndrome [Recovering/Resolving]
